FAERS Safety Report 9596128 (Version 1)
Quarter: 2013Q4

REPORT INFORMATION
  Report Type: Spontaneous
  Country: US (occurrence: US)
  Receive Date: 20131004
  Receipt Date: 20131004
  Transmission Date: 20140711
  Serious: No
  Sender: FDA-Public Use
  Company Number: US-MYLANLABS-2012S1018904

PATIENT
  Age: 55 Year
  Sex: Female

DRUGS (1)
  1. CLINDAMYCIN/BENZOYL PEROXIDE GEL [Suspect]
     Indication: ACNE
     Route: 061
     Dates: start: 20120909

REACTIONS (4)
  - Drug ineffective [Not Recovered/Not Resolved]
  - Acne [Not Recovered/Not Resolved]
  - Application site discolouration [Not Recovered/Not Resolved]
  - Application site rash [Not Recovered/Not Resolved]
